FAERS Safety Report 4265856-4 (Version None)
Quarter: 2004Q1

REPORT INFORMATION
  Report Type: 
  Country: None (occurrence: None)
  Receive Date: 20040107
  Receipt Date: 20030905
  Transmission Date: 20041129
  Serious: Yes (Life-Threatening, Hospitalization, Disabling)
  Sender: FDA-Public Use
  Company Number: PHBS2003JP09601

PATIENT
  Age: 70 Year
  Sex: Female
  Weight: 38 kg

DRUGS (3)
  1. ALLOPURINOL [Concomitant]
     Dosage: 200 MG/D
     Route: 048
     Dates: start: 20030813
  2. GLEEVEC [Suspect]
     Indication: CHRONIC MYELOID LEUKAEMIA
     Dosage: 400 MG/D
     Route: 048
     Dates: start: 20030813, end: 20030801
  3. GLEEVEC [Suspect]
     Dosage: 400 MG/DAY
     Route: 048
     Dates: start: 20030909

REACTIONS (5)
  - CARDIO-RESPIRATORY ARREST [None]
  - CIRCULATORY COLLAPSE [None]
  - HEART RATE INCREASED [None]
  - RESUSCITATION [None]
  - SOMNOLENCE [None]
